FAERS Safety Report 8861610 (Version 1)
Quarter: 2012Q4

REPORT INFORMATION
  Report Type: 
  Country: US (occurrence: US)
  Receive Date: 20121025
  Receipt Date: 20121025
  Transmission Date: 20130627
  Serious: No
  Sender: FDA-Public Use
  Company Number: US-AMGEN-USASP2012017776

PATIENT
  Age: 72 Year
  Sex: Female
  Weight: 63.04 kg

DRUGS (10)
  1. ENBREL [Suspect]
     Indication: RHEUMATOID ARTHRITIS
     Dosage: 50 mg, qwk
     Route: 058
  2. CALCIUM W/VITAMIN D                /00188401/ [Concomitant]
  3. VITAMIN D /00107901/ [Concomitant]
     Dosage: 1000 IU, UNK
  4. NEXIUM                             /01479302/ [Concomitant]
     Dosage: 40 mg, UNK
  5. BUFFERIN                           /00002701/ [Concomitant]
     Dosage: 325 mg, UNK
  6. SYNTHROID [Concomitant]
     Dosage: 112 mug, UNK
  7. TRAZODONE [Concomitant]
     Dosage: 100 mg, UNK
  8. DIOVAN [Concomitant]
     Dosage: 160 mg, UNK
  9. MULTIVITAMIN                       /00097801/ [Concomitant]
  10. DOXYCYCLINE [Concomitant]
     Dosage: 150 mg, UNK

REACTIONS (3)
  - Rheumatoid arthritis [Unknown]
  - Bronchitis [Unknown]
  - Sinusitis [Unknown]
